FAERS Safety Report 4931356-9 (Version None)
Quarter: 2006Q1

REPORT INFORMATION
  Report Type: 
  Country: None (occurrence: None)
  Receive Date: 20060228
  Receipt Date: 20060215
  Transmission Date: 20060701
  Serious: Yes (Life-Threatening)
  Sender: FDA-Public Use
  Company Number: 2006023816

PATIENT
  Age: 49 Year
  Sex: Female
  Weight: 94.8 kg

DRUGS (3)
  1. DEPO-PROVERA [Suspect]
     Indication: CONTRACEPTION
     Dosage: 150 MG (150  MG, 1ST INJECTION), INTRAMUSCULAR; 150 MG (150 MG LAST INJECTION), INTRAMUSCULAR
     Route: 030
     Dates: start: 19990101, end: 19990101
  2. DEPO-PROVERA [Suspect]
     Indication: CONTRACEPTION
     Dosage: 150 MG (150  MG, 1ST INJECTION), INTRAMUSCULAR; 150 MG (150 MG LAST INJECTION), INTRAMUSCULAR
     Route: 030
     Dates: start: 20050801, end: 20050801
  3. BECLAZONE (BECLOMETASONE DIPROPIONATE) [Concomitant]

REACTIONS (2)
  - ENDOMETRIAL CANCER [None]
  - VAGINAL HAEMORRHAGE [None]
